FAERS Safety Report 5128129-3 (Version None)
Quarter: 2006Q4

REPORT INFORMATION
  Report Type: 
  Country: None (occurrence: None)
  Receive Date: 20061011
  Receipt Date: 20061006
  Transmission Date: 20070319
  Serious: Yes (Death, Life-Threatening, Hospitalization)
  Sender: FDA-Public Use
  Company Number: 2006P1000441

PATIENT
  Age: 53 Year
  Sex: Male
  Weight: 67 kg

DRUGS (6)
  1. RETEPLASE (RETEPLASE) [Suspect]
     Indication: MYOCARDIAL INFARCTION
     Dosage: IV
     Route: 042
     Dates: start: 20060904
  2. REOPRO [Suspect]
     Indication: MYOCARDIAL INFARCTION
     Dosage: IV
     Dates: start: 20060904
  3. ASPIRIN [Concomitant]
  4. HEPARIN [Concomitant]
  5. GLYCERYL TRINITRATE [Concomitant]
  6. OMEPRAZOLE [Concomitant]

REACTIONS (8)
  - ACTIVATED PARTIAL THROMBOPLASTIN TIME PROLONGED [None]
  - CEREBRAL HAEMATOMA [None]
  - COMA [None]
  - GENERAL PHYSICAL HEALTH DETERIORATION [None]
  - HAEMODYNAMIC INSTABILITY [None]
  - HAEMORRHAGIC STROKE [None]
  - MENINGEAL DISORDER [None]
  - PUPILS UNEQUAL [None]
